FAERS Safety Report 5151438-9 (Version None)
Quarter: 2006Q4

REPORT INFORMATION
  Report Type: 
  Country: None (occurrence: None)
  Receive Date: 20061115
  Receipt Date: 20061113
  Transmission Date: 20070319
  Serious: Yes (Hospitalization)
  Sender: FDA-Public Use
  Company Number: NL-BRISTOL-MYERS SQUIBB COMPANY-13575675

PATIENT
  Age: 34 Year
  Sex: Male
  Weight: 25 kg

DRUGS (4)
  1. ETOPOSIDE [Suspect]
     Indication: GERM CELL CANCER
     Dates: start: 20060815, end: 20060815
  2. CISPLATIN [Suspect]
     Indication: GERM CELL CANCER
     Dates: start: 20060815, end: 20060815
  3. TAXOL [Suspect]
     Indication: GERM CELL CANCER
     Dates: start: 20060811, end: 20060811
  4. BLEOMYCIN SULFATE [Suspect]
     Indication: GERM CELL CANCER
     Dates: start: 20060811, end: 20060811

REACTIONS (1)
  - FEBRILE NEUTROPENIA [None]
